FAERS Safety Report 15320605 (Version 1)
Quarter: 2018Q3

REPORT INFORMATION
  Report Type: Spontaneous
  Country: US (occurrence: US)
  Receive Date: 20180821
  Receipt Date: 20180821
  Transmission Date: 20181010
  Serious: No
  Sender: FDA-Public Use
  Company Number: None

PATIENT
  Age: 41 Year
  Sex: Male

DRUGS (2)
  1. VIVITROL [Suspect]
     Active Substance: NALTREXONE
     Indication: DRUG DEPENDENCE
     Dosage: ?          OTHER FREQUENCY:EVERY FOUR WEEKS;?
     Route: 030
  2. LISINOPRIL 20 MG [Concomitant]
     Active Substance: LISINOPRIL
     Dates: start: 20180703

REACTIONS (2)
  - Adverse event [None]
  - Refusal of treatment by patient [None]

NARRATIVE: CASE EVENT DATE: 20180820
